FAERS Safety Report 9162609 (Version 2)
Quarter: 2013Q1

REPORT INFORMATION
  Report Type: Spontaneous
  Country: US (occurrence: None)
  Receive Date: 20130206
  Receipt Date: 20130214
  Transmission Date: 20140127
  Serious: Yes (Hospitalization)
  Sender: FDA-Public Use
  Company Number: 2013-0157

PATIENT
  Age: 76 Year
  Sex: Male

DRUGS (7)
  1. KYPROLIS (CARFILZOMIB) (INJECTION FOR INFUSION) (CARFILZOMIB) [Suspect]
     Indication: PLASMA CELL MYELOMA
     Dates: start: 20120911, end: 20130110
  2. BACTRIM (SULFAMETHOXAZOLE) (SULFAMETHOXAZOLE) [Concomitant]
  3. PROTONIX (PANTOPRAZOLE SODIUM SESQUIHYDRATE) (PANTOPRAZOLE SODIUM SESQUINHYDRATE) [Concomitant]
  4. GABAPENTIN (GABAPENTIN) (GABAPENTIN) [Concomitant]
  5. ACYCLOVIR (ACICLOVIR) (ACICLOVIR) [Concomitant]
  6. MULTIVITAMIN (VITAMINS NOS) (VITAMINS NOS) [Concomitant]
  7. MAGNESIUM (MAGNESIUM) (MAGNESIUM) [Concomitant]

REACTIONS (6)
  - Joint swelling [None]
  - Local swelling [None]
  - Agitation [None]
  - Dyspnoea [None]
  - Thyroid disorder [None]
  - Dementia [None]
